FAERS Safety Report 7646333-7 (Version None)
Quarter: 2011Q3

REPORT INFORMATION
  Report Type: 
  Country: None (occurrence: None)
  Receive Date: 20110801
  Receipt Date: 20110718
  Transmission Date: 20111222
  Serious: Yes (Other)
  Sender: FDA-Public Use
  Company Number: US-JNJFOC-20110711111

PATIENT
  Age: 68 Year
  Sex: Female
  Weight: 81.65 kg

DRUGS (3)
  1. EXTRA STRENGTH TYLENOL [Suspect]
     Indication: ARTHRITIS
     Route: 048
     Dates: start: 20110413, end: 20110705
  2. LISINOPRIL [Concomitant]
     Indication: HYPERTENSION
     Dosage: 1 PER DAY
  3. EXTRA STRENGTH TYLENOL [Suspect]
     Route: 048

REACTIONS (1)
  - DIARRHOEA [None]
